FAERS Safety Report 21705763 (Version 4)
Quarter: 2024Q2

REPORT INFORMATION
  Report Type: Report from Study
  Country: KR (occurrence: KR)
  Receive Date: 20221209
  Receipt Date: 20240408
  Transmission Date: 20240715
  Serious: Yes (Hospitalization, Other)
  Sender: FDA-Public Use
  Company Number: KR-GLAXOSMITHKLINE-KR2022GSK183919

PATIENT

DRUGS (8)
  1. BELIMUMAB [Suspect]
     Active Substance: BELIMUMAB
     Indication: Systemic lupus erythematosus
     Dosage: 480 MG
     Route: 042
     Dates: start: 20221115, end: 20221115
  2. BELIMUMAB [Suspect]
     Active Substance: BELIMUMAB
     Dosage: 480 MG
     Route: 042
     Dates: start: 20221129, end: 20221129
  3. METHYLPREDNISOLONE [Concomitant]
     Active Substance: METHYLPREDNISOLONE
     Indication: Product used for unknown indication
     Dosage: SINGLE DOSE 16, QD
     Route: 048
     Dates: start: 20221007, end: 20221201
  4. HYDROXYCHLOROQUINE SULFATE [Concomitant]
     Active Substance: HYDROXYCHLOROQUINE SULFATE
     Indication: Product used for unknown indication
     Dosage: SINGLE DOSE 100, QD
     Route: 048
     Dates: start: 20140301, end: 20221201
  5. HYDROXYCHLOROQUINE SULFATE [Concomitant]
     Active Substance: HYDROXYCHLOROQUINE SULFATE
     Dosage: SINGLE DOSE 200, QD
     Route: 048
     Dates: start: 20140301, end: 20221201
  6. CELEBREX [Concomitant]
     Active Substance: CELECOXIB
     Indication: Abdominal pain
     Dosage: SINGLE DOSE 100, BID
     Route: 048
     Dates: start: 20221001, end: 20221201
  7. PANTOPRAZOLE SODIUM [Concomitant]
     Active Substance: PANTOPRAZOLE SODIUM
     Indication: Prophylaxis
     Dosage: SINGLE DOSE 20, QD
     Route: 048
     Dates: start: 20161228, end: 20221201
  8. BONKY [Concomitant]
     Indication: Prophylaxis
     Dosage: SINGLE DOSE 0.25, BID
     Route: 048
     Dates: start: 20171115, end: 20221201

REACTIONS (1)
  - Lupus enteritis [Recovered/Resolved]

NARRATIVE: CASE EVENT DATE: 20221202
